FAERS Safety Report 20923587 (Version 17)
Quarter: 2022Q4

REPORT INFORMATION
  Report Type: Report from Study
  Country: CL (occurrence: None)
  Receive Date: 20220607
  Receipt Date: 20221118
  Transmission Date: 20230112
  Serious: Yes (Life-Threatening, Hospitalization)
  Sender: FDA-Public Use
  Company Number: CL-Eisai Medical Research-EC-2022-116352

PATIENT
  Age: 70 Year
  Sex: Male
  Weight: 58 kg

DRUGS (16)
  1. LENVATINIB [Suspect]
     Active Substance: LENVATINIB
     Indication: Clear cell renal cell carcinoma
     Route: 048
     Dates: start: 20220512, end: 20220528
  2. PEMBROLIZUMAB [Suspect]
     Active Substance: PEMBROLIZUMAB
     Indication: Clear cell renal cell carcinoma
     Route: 041
     Dates: start: 20220512, end: 20220512
  3. BELZUTIFAN [Suspect]
     Active Substance: BELZUTIFAN
     Indication: Clear cell renal cell carcinoma
     Route: 048
     Dates: start: 20220512, end: 20220528
  4. BISOPROLOL [Suspect]
     Active Substance: BISOPROLOL
     Indication: Hyperkalaemia
     Route: 048
     Dates: start: 20220704, end: 20220705
  5. BISOPROLOL [Suspect]
     Active Substance: BISOPROLOL
     Indication: Respiratory failure
  6. BISOPROLOL [Suspect]
     Active Substance: BISOPROLOL
     Indication: Myocarditis
  7. LOSARTAN [Suspect]
     Active Substance: LOSARTAN
     Indication: Respiratory failure
     Route: 048
     Dates: start: 20220530, end: 20220619
  8. LOSARTAN [Suspect]
     Active Substance: LOSARTAN
     Indication: Hyperkalaemia
  9. SPIRONOLACTONE [Suspect]
     Active Substance: SPIRONOLACTONE
     Indication: Respiratory failure
     Route: 048
     Dates: start: 20220530, end: 20220619
  10. SPIRONOLACTONE [Suspect]
     Active Substance: SPIRONOLACTONE
     Indication: Hyperkalaemia
  11. ACETAMINOPHEN [Concomitant]
     Active Substance: ACETAMINOPHEN
     Dates: start: 20220421, end: 20220529
  12. TRAMADOL HYDROCHLORIDE [Concomitant]
     Active Substance: TRAMADOL HYDROCHLORIDE
     Dates: start: 20220421, end: 20220529
  13. DOMPERIDONE [Concomitant]
     Active Substance: DOMPERIDONE
     Dates: start: 20220421, end: 20220529
  14. CELECOXIB [Concomitant]
     Active Substance: CELECOXIB
     Dates: start: 20220421, end: 20220529
  15. ONDANSETRON [Concomitant]
     Active Substance: ONDANSETRON
     Dates: start: 20220511
  16. PREGABALIN [Concomitant]
     Active Substance: PREGABALIN
     Dates: start: 20220519, end: 20220705

REACTIONS (2)
  - Myocarditis [Recovering/Resolving]
  - Hyperkalaemia [Recovered/Resolved]

NARRATIVE: CASE EVENT DATE: 20220529
